FAERS Safety Report 22390183 (Version 2)
Quarter: 2023Q2

REPORT INFORMATION
  Report Type: Spontaneous
  Country: US (occurrence: US)
  Receive Date: 20230531
  Receipt Date: 20230628
  Transmission Date: 20230721
  Serious: No
  Sender: FDA-Public Use
  Company Number: US-PFIZER INC-PV202300070975

PATIENT
  Age: 56 Year
  Sex: Female

DRUGS (1)
  1. XELJANZ [Suspect]
     Active Substance: TOFACITINIB CITRATE
     Dosage: 1 DAILY FOR FIRST WEEK

REACTIONS (7)
  - Myalgia [Unknown]
  - Diarrhoea [Unknown]
  - Headache [Unknown]
  - Rash [Unknown]
  - Herpes zoster [Unknown]
  - Pain [Unknown]
  - Off label use [Unknown]
